FAERS Safety Report 13153836 (Version 1)
Quarter: 2017Q1

REPORT INFORMATION
  Report Type: Spontaneous
  Country: ES (occurrence: ES)
  Receive Date: 20170126
  Receipt Date: 20170126
  Transmission Date: 20170428
  Serious: Yes (Death, Hospitalization)
  Sender: FDA-Public Use
  Company Number: ES-NOVOPROD-528196

PATIENT
  Age: 41 Year
  Sex: Male

DRUGS (3)
  1. NOVORAPID [Suspect]
     Active Substance: INSULIN ASPART
     Indication: TYPE 1 DIABETES MELLITUS
     Dosage: 11 U, QD (4-3-4 U)
     Route: 058
     Dates: start: 20120420
  2. LANTUS [Concomitant]
     Active Substance: INSULIN GLARGINE
     Indication: TYPE 1 DIABETES MELLITUS
     Dosage: 26 U, QD (DINNER)
     Route: 058
     Dates: start: 20120420, end: 20150812
  3. NOVORAPID [Suspect]
     Active Substance: INSULIN ASPART
     Dosage: UNK
     Route: 065
     Dates: end: 20150812

REACTIONS (3)
  - Brain death [Fatal]
  - Completed suicide [Fatal]
  - Coma [Fatal]

NARRATIVE: CASE EVENT DATE: 20150812
